FAERS Safety Report 20391390 (Version 3)
Quarter: 2022Q4

REPORT INFORMATION
  Report Type: Spontaneous
  Country: US (occurrence: US)
  Receive Date: 20220128
  Receipt Date: 20221025
  Transmission Date: 20230112
  Serious: No
  Sender: FDA-Public Use
  Company Number: US-SA-SAC20220126000148

PATIENT
  Age: 47 Year
  Sex: Female
  Weight: 52 kg

DRUGS (2)
  1. DUPIXENT [Suspect]
     Active Substance: DUPILUMAB
     Indication: Dermatitis atopic
     Dosage: 300MG, QOW
     Route: 058
     Dates: start: 202108, end: 202209
  2. VENTOLIN HFA [Concomitant]
     Active Substance: ALBUTEROL SULFATE

REACTIONS (10)
  - Hypotension [Unknown]
  - Respiratory tract infection [Recovered/Resolved]
  - Alopecia [Unknown]
  - Iodine uptake decreased [Unknown]
  - Blood selenium decreased [Unknown]
  - Thyroxine decreased [Unknown]
  - Blood thyroid stimulating hormone increased [Unknown]
  - Respiratory disorder [Unknown]
  - Asthma [Not Recovered/Not Resolved]
  - Adverse drug reaction [Not Recovered/Not Resolved]

NARRATIVE: CASE EVENT DATE: 20211101
